FAERS Safety Report 8769535 (Version 1)
Quarter: 2012Q4

REPORT INFORMATION
  Report Type: 
  Country: US (occurrence: US)
  Receive Date: 20120904
  Receipt Date: 20120904
  Transmission Date: 20130627
  Serious: Yes (Other)
  Sender: FDA-Public Use
  Company Number: US-ELI_LILLY_AND_COMPANY-US201208009633

PATIENT
  Age: 42 Year
  Sex: Female

DRUGS (1)
  1. PROZAC [Suspect]
     Indication: MAJOR DEPRESSION
     Dosage: UNK, unknown

REACTIONS (4)
  - Surgery [Unknown]
  - Pain [Unknown]
  - Intentional drug misuse [Unknown]
  - Drug ineffective [Unknown]
